FAERS Safety Report 19248027 (Version 2)
Quarter: 2023Q2

REPORT INFORMATION
  Report Type: Spontaneous
  Country: US (occurrence: US)
  Receive Date: 20210512
  Receipt Date: 20230529
  Transmission Date: 20230722
  Serious: No
  Sender: FDA-Public Use
  Company Number: US-UCBSA-2020024786

PATIENT
  Age: 32 Year
  Sex: Female

DRUGS (5)
  1. CIMZIA [Suspect]
     Active Substance: CERTOLIZUMAB PEGOL
     Indication: Ankylosing spondylitis
     Dosage: UNK
  2. CELEBREX [Concomitant]
     Active Substance: CELECOXIB
  3. COSENTYX [Concomitant]
     Active Substance: SECUKINUMAB
  4. HUMIRA [Concomitant]
     Active Substance: ADALIMUMAB
  5. ENBREL [Concomitant]
     Active Substance: ETANERCEPT

REACTIONS (6)
  - Thinking abnormal [Unknown]
  - Ankylosing spondylitis [Unknown]
  - Gait inability [Unknown]
  - Fatigue [Unknown]
  - Pain [Unknown]
  - Therapeutic product effect incomplete [Unknown]

NARRATIVE: CASE EVENT DATE: 20200618
